FAERS Safety Report 21177616 (Version 3)
Quarter: 2022Q3

REPORT INFORMATION
  Report Type: Spontaneous
  Country: TR (occurrence: TR)
  Receive Date: 20220805
  Receipt Date: 20220820
  Transmission Date: 20221026
  Serious: Yes (Other)
  Sender: FDA-Public Use
  Company Number: TR-TEVA-2022-TR-2060689

PATIENT
  Age: 10 Year
  Sex: Male

DRUGS (4)
  1. PREDNISOLONE [Suspect]
     Active Substance: PREDNISOLONE
     Indication: Stevens-Johnson syndrome
     Route: 065
  2. CEFDINIR [Suspect]
     Active Substance: CEFDINIR
     Indication: Upper respiratory tract infection
     Route: 065
  3. BEVACIZUMAB [Suspect]
     Active Substance: BEVACIZUMAB
     Indication: Stevens-Johnson syndrome
     Route: 061
  4. CYCLOSPORINE [Suspect]
     Active Substance: CYCLOSPORINE
     Indication: Stevens-Johnson syndrome
     Route: 065

REACTIONS (3)
  - Stevens-Johnson syndrome [Recovering/Resolving]
  - Conjunctivalisation [Not Recovered/Not Resolved]
  - Drug ineffective [Unknown]
